FAERS Safety Report 4783358-3 (Version None)
Quarter: 2005Q3

REPORT INFORMATION
  Report Type: 
  Country: None (occurrence: None)
  Receive Date: 20050929
  Receipt Date: 20050915
  Transmission Date: 20060218
  Serious: Yes (Other)
  Sender: FDA-Public Use
  Company Number: US-GLAXOSMITHKLINE-A0574373A

PATIENT
  Age: 47 Year
  Sex: Female
  Weight: 83 kg

DRUGS (4)
  1. NICORETTE (MINT) [Suspect]
     Indication: FEAR
     Dosage: 4MG TWELVE TIMES PER DAY
     Route: 002
     Dates: start: 20010101
  2. PREMARIN [Concomitant]
     Indication: HYSTERECTOMY
     Route: 048
     Dates: start: 19940101
  3. SYNTHROID [Concomitant]
     Indication: HYPOTHYROIDISM
     Route: 048
     Dates: start: 19840101
  4. EFFEXOR [Concomitant]
     Indication: ANXIETY
     Dates: start: 19970101

REACTIONS (2)
  - DEPENDENCE [None]
  - DRUG ABUSER [None]
